FAERS Safety Report 5538322-3 (Version None)
Quarter: 2007Q4

REPORT INFORMATION
  Report Type: 
  Country: None (occurrence: None)
  Receive Date: 20071205
  Receipt Date: 20071119
  Transmission Date: 20080405
  Serious: Yes (Death)
  Sender: FDA-Public Use
  Company Number: 2007S1000517

PATIENT
  Sex: Male
  Weight: 52.1 kg

DRUGS (15)
  1. CUBICIN [Suspect]
     Indication: OSTEOMYELITIS CHRONIC
     Dosage: 7.8 MG/KG; Q24H; IV
     Route: 042
     Dates: start: 20070919, end: 20071025
  2. SODIUM CHLORIDE [Concomitant]
  3. CARISOPRODOL [Concomitant]
  4. CLONAZEPAM [Concomitant]
  5. FENTANYL [Concomitant]
  6. FOLIC ACID [Concomitant]
  7. RIFAMPIN [Concomitant]
  8. LEVOFLOXACIN [Concomitant]
  9. PROMETHAZINE [Concomitant]
  10. TYLENOL [Concomitant]
  11. LORTAB [Concomitant]
  12. VANCOMYCIN [Concomitant]
  13. HYDROCORTISONE [Concomitant]
  14. ZOSYN [Concomitant]
  15. HEPARIN LOCK FLUSH [Concomitant]

REACTIONS (4)
  - MULTIPLE DRUG OVERDOSE [None]
  - NAUSEA [None]
  - NECK PAIN [None]
  - WOUND INFECTION [None]
